FAERS Safety Report 7208807-2 (Version None)
Quarter: 2011Q1

REPORT INFORMATION
  Report Type: 
  Country: None (occurrence: None)
  Receive Date: 20110104
  Receipt Date: 20101231
  Transmission Date: 20110831
  Serious: Yes (Death)
  Sender: FDA-Public Use
  Company Number: PHHY2010IN89373

PATIENT
  Age: 70 Year
  Sex: Female

DRUGS (1)
  1. FEMARA [Suspect]
     Dosage: ONCE A MONTH
     Route: 048

REACTIONS (1)
  - CARDIAC DISORDER [None]
